FAERS Safety Report 15894925 (Version 1)
Quarter: 2019Q1

REPORT INFORMATION
  Report Type: Spontaneous
  Country: JM (occurrence: JP)
  Receive Date: 20190131
  Receipt Date: 20190131
  Transmission Date: 20190417
  Serious: Yes (Other)
  Sender: FDA-Public Use
  Company Number: JP-B.I. PHARMACEUTICALS,INC./RIDGEFIELD-2019-BI-003896

PATIENT
  Age: 69 Year
  Sex: Male

DRUGS (4)
  1. GILOTRIF [Suspect]
     Active Substance: AFATINIB
     Indication: EGFR GENE MUTATION
     Route: 065
  2. GILOTRIF [Suspect]
     Active Substance: AFATINIB
     Indication: LUNG NEOPLASM MALIGNANT
  3. CISPLATIN. [Concomitant]
     Active Substance: CISPLATIN
     Indication: ADJUVANT THERAPY
     Route: 065
  4. PEMETREXED. [Concomitant]
     Active Substance: PEMETREXED
     Indication: ADJUVANT THERAPY
     Route: 065

REACTIONS (3)
  - Metastases to meninges [Unknown]
  - Rash [Unknown]
  - Diarrhoea [Unknown]
